FAERS Safety Report 8327887-4 (Version None)
Quarter: 2012Q2

REPORT INFORMATION
  Report Type: 
  Country: None (occurrence: None)
  Receive Date: 20120502
  Receipt Date: 20120418
  Transmission Date: 20120825
  Serious: Yes (Hospitalization)
  Sender: FDA-Public Use
  Company Number: CN-JNJFOC-20120413561

PATIENT
  Sex: Female
  Weight: 65 kg

DRUGS (1)
  1. IMODIUM [Suspect]
     Indication: DIARRHOEA
     Dosage: 2 CAPSULES 3 TIMES A DAY
     Route: 048
     Dates: start: 20110212, end: 20110213

REACTIONS (2)
  - INTESTINAL OBSTRUCTION [None]
  - INAPPROPRIATE SCHEDULE OF DRUG ADMINISTRATION [None]
